FAERS Safety Report 15712878 (Version 1)
Quarter: 2018Q4

REPORT INFORMATION
  Report Type: Spontaneous
  Country: US (occurrence: US)
  Receive Date: 20181211
  Receipt Date: 20181211
  Transmission Date: 20190205
  Serious: No
  Sender: FDA-Public Use
  Company Number: None

PATIENT
  Age: 81 Year
  Sex: Female
  Weight: 116.1 kg

DRUGS (21)
  1. CONTRAVE [Suspect]
     Active Substance: BUPROPION HYDROCHLORIDE\NALTREXONE HYDROCHLORIDE
     Indication: WEIGHT DECREASED
     Dosage: ?          QUANTITY:120 TABLET(S);OTHER FREQUENCY:1 IN AM FIRST WEEK;?
     Route: 048
     Dates: start: 20181127, end: 20181211
  2. ZOLOFT [Concomitant]
     Active Substance: SERTRALINE HYDROCHLORIDE
  3. CELEBREX [Concomitant]
     Active Substance: CELECOXIB
  4. EXFORGE [Concomitant]
     Active Substance: AMLODIPINE BESYLATE\VALSARTAN
  5. AZO CRANBERRY [Concomitant]
     Active Substance: DIETARY SUPPLEMENT
  6. VITAMIN C [Concomitant]
     Active Substance: ASCORBIC ACID
  7. CA++ 600MG [Concomitant]
  8. CPAP [Concomitant]
     Active Substance: DEVICE
  9. ASPIRIN. [Concomitant]
     Active Substance: ASPIRIN
  10. PROBIOTIC AM [Concomitant]
  11. VITAMIN D [Concomitant]
     Active Substance: CHOLECALCIFEROL
  12. METOPROLOL. [Concomitant]
     Active Substance: METOPROLOL
  13. AMELORIDE [Concomitant]
  14. FLUTICASONE. [Concomitant]
     Active Substance: FLUTICASONE
  15. ASTELIN [Concomitant]
     Active Substance: AZELASTINE HYDROCHLORIDE
  16. HYDROCODONE 5/325 [Concomitant]
     Active Substance: HYDROCODONE
  17. ZOLPIDEM [Concomitant]
     Active Substance: ZOLPIDEM\ZOLPIDEM TARTRATE
  18. FISH OIL [Concomitant]
     Active Substance: FISH OIL
  19. METHENAMINE HIP [Concomitant]
  20. DEXILANT [Concomitant]
     Active Substance: DEXLANSOPRAZOLE
  21. LORAZAPAM [Concomitant]
     Active Substance: LORAZEPAM

REACTIONS (1)
  - Blood pressure increased [None]

NARRATIVE: CASE EVENT DATE: 20181202
